FAERS Safety Report 7319090-1 (Version None)
Quarter: 2011Q1

REPORT INFORMATION
  Report Type: 
  Country: None (occurrence: None)
  Receive Date: 20110214
  Receipt Date: 20110203
  Transmission Date: 20110831
  Serious: Yes (Hospitalization)
  Sender: FDA-Public Use
  Company Number: LEO-2011-00125

PATIENT
  Age: 75 Year
  Sex: Female
  Weight: 59 kg

DRUGS (8)
  1. NERISONE [Concomitant]
  2. DEXERYL (PHENYLEPHRINE HYDROCHLORIDE, GUAIFENESIN, CHLORPHENAMINE MALE [Concomitant]
  3. DIPROSALIC (SALICYLIC ACID, BETAMETHASONE DIPROPIONATE) [Concomitant]
  4. DOVONEX [Suspect]
     Indication: PSORIASIS
     Dosage: TOPICAL
     Route: 061
     Dates: end: 20101004
  5. DAIVOBET (BETAMETHASONE DIPROPIONATE, CALCIPOTRIOL) (50 MICROGRAM, OIN [Concomitant]
  6. DERMOVAL (CLOBETASOL PROPIONATE) (CREAM) [Concomitant]
  7. BETESIL (BETAMETHASONE VALERATE) [Concomitant]
  8. ZELITREX (VALACICLOVIR HYDROCHLORIDE) [Concomitant]

REACTIONS (11)
  - ORAL HERPES [None]
  - PSORIASIS [None]
  - HYPERKALAEMIA [None]
  - DERMATITIS CONTACT [None]
  - NO THERAPEUTIC RESPONSE [None]
  - ASTHENIA [None]
  - INSOMNIA [None]
  - CONDITION AGGRAVATED [None]
  - SKIN TEST POSITIVE [None]
  - VULVITIS [None]
  - PRURITUS [None]
